FAERS Safety Report 8850638 (Version 3)
Quarter: 2013Q2

REPORT INFORMATION
  Report Type: Spontaneous
  Country: US (occurrence: US)
  Receive Date: 20121019
  Receipt Date: 20130510
  Transmission Date: 20140414
  Serious: No
  Sender: FDA-Public Use
  Company Number: US-009507513-1210USA002803

PATIENT
  Sex: Male

DRUGS (11)
  1. VICTRELIS [Suspect]
     Indication: CHRONIC HEPATITIS C
     Dosage: 800 MG, TID
     Route: 048
     Dates: start: 20121016
  2. VICTRELIS [Suspect]
     Indication: HEPATITIS C
     Dosage: 800 MG, TID, WITH FOOD
     Route: 048
  3. VICTRELIS [Suspect]
     Dosage: 800 MG, TID
     Route: 048
  4. VICTRELIS [Suspect]
     Dosage: 800 MG, TID, 7 TO 9 HOURS APART WITH MEAL OR LIGHT SNACK
     Route: 048
  5. PEGASYS [Suspect]
     Dosage: UNK
     Dates: start: 20120928
  6. RIBAPAK [Concomitant]
     Dosage: UNK
     Dates: start: 20120928
  7. MELOXICAM [Concomitant]
  8. HYDROCHLOROTHIAZIDE [Concomitant]
  9. SERTRALINE HYDROCHLORIDE [Concomitant]
  10. ALPRAZOLAM [Concomitant]
  11. DILTIAZEM HYDROCHLORIDE [Concomitant]

REACTIONS (11)
  - Hyperhidrosis [Unknown]
  - Depression [Not Recovered/Not Resolved]
  - Mood altered [Not Recovered/Not Resolved]
  - Pain [Unknown]
  - Pain [Not Recovered/Not Resolved]
  - Influenza like illness [Unknown]
  - Pruritus [Not Recovered/Not Resolved]
  - Nausea [Unknown]
  - Rash [Not Recovered/Not Resolved]
  - Fatigue [Not Recovered/Not Resolved]
  - Rash [Not Recovered/Not Resolved]
